FAERS Safety Report 9440752 (Version 2)
Quarter: 2013Q3

REPORT INFORMATION
  Report Type: Report from Study
  Country: FR (occurrence: FR)
  Receive Date: 20130805
  Receipt Date: 20130904
  Transmission Date: 20140515
  Serious: Yes (Life-Threatening, Hospitalization)
  Sender: FDA-Public Use
  Company Number: FR-AMGEN-FRACT2013023778

PATIENT
  Age: 68 Year
  Sex: Male
  Weight: 79 kg

DRUGS (16)
  1. PANITUMUMAB [Suspect]
     Indication: TRANSITIONAL CELL CARCINOMA
     Dosage: 474 MG, UNK
     Route: 042
     Dates: start: 20130110, end: 20130316
  2. METHOTREXATE [Concomitant]
     Indication: TRANSITIONAL CELL CARCINOMA
     Dosage: 50.00 MG, UNK
     Route: 042
     Dates: start: 20130110
  3. VINBLASTINE [Concomitant]
     Indication: TRANSITIONAL CELL CARCINOMA
     Dosage: 4.80 MG, UNK
     Route: 042
     Dates: start: 20130110
  4. DOXORUBICIN [Concomitant]
     Indication: TRANSITIONAL CELL CARCINOMA
     Dosage: 48.00 MG, UNK
     Route: 042
     Dates: start: 20130110
  5. CISPLATINE [Concomitant]
     Indication: TRANSITIONAL CELL CARCINOMA
     Dosage: 114 MG, UNK
     Route: 042
     Dates: start: 20130110
  6. LOVENOX [Concomitant]
     Indication: MYOCARDIAL INFARCTION
     Dosage: 0.8 ML, BID
     Route: 048
     Dates: start: 20130106
  7. DIGOXINE [Concomitant]
     Indication: ATRIAL FIBRILLATION
     Dosage: 0.25 MG, QD
     Route: 048
     Dates: start: 201006, end: 20130402
  8. DIGOXINE [Concomitant]
     Indication: SUPRAVENTRICULAR EXTRASYSTOLES
  9. CARDENSIEL [Concomitant]
     Indication: BRONCHOPNEUMOPATHY
     Dosage: 1.25 MG, QD
     Route: 048
     Dates: start: 201006, end: 20130402
  10. TRIATEC [Concomitant]
     Indication: HYPERTENSION
     Dosage: 1.25 MG, QD
     Route: 048
     Dates: start: 201007
  11. XATRAL [Concomitant]
     Indication: BENIGN PROSTATIC HYPERPLASIA
     Dosage: 10 MG, QD
     Route: 048
     Dates: start: 201007
  12. LASILIX [Concomitant]
     Indication: HYPERTENSION
     Dosage: 20 MG, QD
     Route: 048
     Dates: start: 201007
  13. ALDACTONE [Concomitant]
     Indication: HYPERTENSION
     Dosage: 50 MG, QD
     Route: 048
     Dates: start: 201007
  14. PREVISCAN [Concomitant]
     Indication: ATRIAL FIBRILLATION
     Dosage: UNK
     Dates: start: 201202
  15. MOUTH WASH [Concomitant]
     Dosage: UNK
     Dates: start: 20130130
  16. OMEXEL [Concomitant]
     Dosage: UNK UNK, QD
     Dates: start: 2010

REACTIONS (2)
  - Sepsis [Recovered/Resolved]
  - Febrile bone marrow aplasia [Recovered/Resolved]
